FAERS Safety Report 9808980 (Version 1)
Quarter: 2014Q1

REPORT INFORMATION
  Report Type: Spontaneous
  Country: FR (occurrence: FR)
  Receive Date: 20140110
  Receipt Date: 20140110
  Transmission Date: 20141002
  Serious: Yes (Hospitalization)
  Sender: FDA-Public Use
  Company Number: PHHY2014FR002097

PATIENT
  Age: 76 Year
  Sex: Female

DRUGS (14)
  1. TEGRETOL [Suspect]
     Dosage: 200 MG, QD
     Route: 048
  2. TEGRETOL [Suspect]
     Dosage: 3 DF, QD
     Route: 048
     Dates: start: 20131126, end: 20131126
  3. ZOPICLONE [Suspect]
     Dosage: 2 DF, DAILY
     Route: 048
  4. ZOPICLONE [Suspect]
     Dosage: 6 DF, QD
     Route: 048
     Dates: start: 20131126, end: 20131126
  5. VALIUM [Suspect]
     Dosage: 2 DF, DAILY
     Route: 048
  6. VALIUM [Suspect]
     Dosage: 6 DF, QD
     Route: 048
     Dates: start: 20131126, end: 20131126
  7. DIHYDROERGOTAMINE MESYLATE [Suspect]
     Dosage: 2 DF, DAILY
     Route: 048
  8. DIHYDROERGOTAMINE MESYLATE [Suspect]
     Dosage: 6 DF, QD
     Route: 048
     Dates: start: 20131126, end: 20131126
  9. DITROPAN [Suspect]
     Dosage: 0.5 DF, BID
     Route: 048
  10. DITROPAN [Suspect]
     Dosage: 3 DF, QD
     Route: 048
     Dates: start: 20131126, end: 20131126
  11. TANGANIL [Suspect]
     Dosage: 3 DF, DAILY
     Route: 048
  12. TANGANIL [Suspect]
     Dosage: 9 DF, QD
     Route: 048
     Dates: start: 20131126, end: 20131126
  13. THERALENE [Suspect]
     Dosage: 4 DF, DAILY
     Route: 048
  14. THERALENE [Suspect]
     Dosage: 12 DF, QD
     Route: 048
     Dates: start: 20131126, end: 20131126

REACTIONS (4)
  - Hypothermia [Unknown]
  - Hypotension [Unknown]
  - Confusional state [Unknown]
  - Medication error [Recovered/Resolved]
